FAERS Safety Report 14956981 (Version 2)
Quarter: 2018Q4

REPORT INFORMATION
  Report Type: Report from Study
  Country: US (occurrence: US)
  Receive Date: 20180531
  Receipt Date: 20181128
  Transmission Date: 20190204
  Serious: Yes (Other)
  Sender: FDA-Public Use
  Company Number: US-ROCHE-2095323

PATIENT
  Sex: Male

DRUGS (2)
  1. CELLCEPT [Suspect]
     Active Substance: MYCOPHENOLATE MOFETIL\MYCOPHENOLATE MOFETIL HYDROCHLORIDE
     Dosage: 200MG/ML ORAL SUSPENSION?GIVE 8CC TWICE A DAY (BID)
     Route: 048
  2. CELLCEPT [Suspect]
     Active Substance: MYCOPHENOLATE MOFETIL\MYCOPHENOLATE MOFETIL HYDROCHLORIDE
     Indication: MYASTHENIA GRAVIS
     Dosage: 200MG/ML ORAL SUSPENSION
     Route: 048

REACTIONS (10)
  - Off label use [Unknown]
  - Eyelid ptosis [Unknown]
  - Neurological symptom [Unknown]
  - Myasthenia gravis [Unknown]
  - Tremor [Unknown]
  - Intentional product use issue [Unknown]
  - Paralysis [Unknown]
  - Overweight [Unknown]
  - Laboratory test abnormal [Unknown]
  - Gaze palsy [Unknown]
